FAERS Safety Report 8293472-6 (Version None)
Quarter: 2012Q2

REPORT INFORMATION
  Report Type: 
  Country: None (occurrence: None)
  Receive Date: 20120417
  Receipt Date: 20120404
  Transmission Date: 20120825
  Serious: Yes (Death)
  Sender: FDA-Public Use
  Company Number: BE-MYLANLABS-2012S1007444

PATIENT
  Age: 42 Year
  Sex: Male

DRUGS (3)
  1. LEVETIRACETAM [Concomitant]
     Indication: EPILEPSY
     Route: 065
  2. LAMOTRGINE [Suspect]
     Indication: EPILEPSY
     Dosage: 100MG PER DAY
     Route: 065
  3. CLONAZEPAM [Concomitant]
     Indication: EPILEPSY
     Route: 065

REACTIONS (6)
  - PYREXIA [None]
  - HEPATITIS ACUTE [None]
  - LYMPHADENOPATHY [None]
  - URTICARIA [None]
  - DRUG RASH WITH EOSINOPHILIA AND SYSTEMIC SYMPTOMS [None]
  - ANGIOEDEMA [None]
